FAERS Safety Report 6239508-5 (Version None)
Quarter: 2009Q2

REPORT INFORMATION
  Report Type: 
  Country: None (occurrence: None)
  Receive Date: 20090618
  Receipt Date: 20090618
  Transmission Date: 20091009
  Serious: No
  Sender: FDA-Public Use
  Company Number: None

PATIENT
  Age: 43 Year
  Sex: Female
  Weight: 52.1637 kg

DRUGS (1)
  1. ZICAM NASAL GEL MATRIXX INITIATIVES [Suspect]
     Indication: NASOPHARYNGITIS
     Dosage: SINGLE SPRAY INTO NOSE 2 NASAL
     Route: 045
     Dates: start: 20060215, end: 20060215

REACTIONS (1)
  - ANOSMIA [None]
